FAERS Safety Report 8429857-4 (Version None)
Quarter: 2012Q2

REPORT INFORMATION
  Report Type: 
  Country: None (occurrence: None)
  Receive Date: 20120612
  Receipt Date: 20120530
  Transmission Date: 20120825
  Serious: No
  Sender: FDA-Public Use
  Company Number: US-ASTRAZENECA-2012SE35629

PATIENT

DRUGS (3)
  1. SEROQUEL [Suspect]
     Route: 048
     Dates: start: 20050101
  2. SEROQUEL [Suspect]
     Route: 048
  3. 8 MEDS [Concomitant]

REACTIONS (5)
  - PSYCHOTIC DISORDER [None]
  - INTENTIONAL DRUG MISUSE [None]
  - SOCIAL AVOIDANT BEHAVIOUR [None]
  - BIPOLAR DISORDER [None]
  - ADVERSE EVENT [None]
